FAERS Safety Report 16881448 (Version 1)
Quarter: 2019Q4

REPORT INFORMATION
  Report Type: Spontaneous
  Country: US (occurrence: US)
  Receive Date: 20191003
  Receipt Date: 20191003
  Transmission Date: 20200122
  Serious: Yes (Hospitalization)
  Sender: FDA-Public Use
  Company Number: None

PATIENT
  Age: 43 Year
  Sex: Female
  Weight: 67.5 kg

DRUGS (10)
  1. KETAMINE [Concomitant]
     Active Substance: KETAMINE
     Dates: start: 20190503, end: 20190503
  2. ONDANSETRON [Concomitant]
     Active Substance: ONDANSETRON
     Dates: start: 20190503, end: 20190503
  3. HEPARIN [Concomitant]
     Active Substance: HEPARIN SODIUM
     Dates: start: 20190503, end: 20190503
  4. LIDOCAINE. [Suspect]
     Active Substance: LIDOCAINE
     Indication: POSTOPERATIVE ANALGESIA
     Dosage: ?          OTHER FREQUENCY:0.75 MG/MIN;?
     Route: 041
     Dates: start: 20190503, end: 20190504
  5. ROCURONIUM [Concomitant]
     Active Substance: ROCURONIUM BROMIDE
     Dates: start: 20190503, end: 20190503
  6. DEXAMETHASONE. [Concomitant]
     Active Substance: DEXAMETHASONE
     Dates: start: 20190503, end: 20190503
  7. PROPOFOL. [Concomitant]
     Active Substance: PROPOFOL
     Dates: start: 20190503, end: 20190503
  8. MIDAZOLAM [Concomitant]
     Active Substance: MIDAZOLAM HYDROCHLORIDE
     Dates: start: 20190503, end: 20190503
  9. FENTANYL. [Concomitant]
     Active Substance: FENTANYL
     Dates: start: 20190503, end: 20190503
  10. MAGNESIUM [Concomitant]
     Active Substance: MAGNESIUM
     Dates: start: 20190503, end: 20190503

REACTIONS (3)
  - Vertigo [None]
  - Dizziness [None]
  - Vision blurred [None]

NARRATIVE: CASE EVENT DATE: 20190503
